FAERS Safety Report 6043343-0 (Version None)
Quarter: 2009Q1

REPORT INFORMATION
  Report Type: 
  Country: None (occurrence: None)
  Receive Date: 20090115
  Receipt Date: 20090105
  Transmission Date: 20090719
  Serious: Yes (Other)
  Sender: FDA-Public Use
  Company Number: DSU-2009-00015

PATIENT
  Sex: Female
  Weight: 66.6788 kg

DRUGS (6)
  1. BENICAR HCT [Suspect]
     Indication: HYPERTENSION
     Dosage: 40/12.5 MG (QD), PER ORAL, 40/25 MG (QD), PER ORAL, 40/12.5 MG (QD), PER ORAL,
     Route: 048
     Dates: start: 20050101, end: 20081201
  2. BENICAR HCT [Suspect]
     Indication: HYPERTENSION
     Dosage: 40/12.5 MG (QD), PER ORAL, 40/25 MG (QD), PER ORAL, 40/12.5 MG (QD), PER ORAL,
     Route: 048
     Dates: start: 20081201, end: 20090102
  3. BENICAR HCT [Suspect]
     Indication: HYPERTENSION
     Dosage: 40/12.5 MG (QD), PER ORAL, 40/25 MG (QD), PER ORAL, 40/12.5 MG (QD), PER ORAL,
     Route: 048
     Dates: start: 20090103
  4. LEXAPRO (ESCITALOPRAM OXALATE) (ESCITALOPRAM OXALATE) [Concomitant]
  5. ATIVAN [Concomitant]
  6. BABY ASPIRIN (ACETYLSALICYLIC ACID (ACETYLSALICYLIC ACID) [Concomitant]

REACTIONS (7)
  - BLOOD PRESSURE INCREASED [None]
  - DEHYDRATION [None]
  - DIARRHOEA [None]
  - DIZZINESS [None]
  - IRRITABLE BOWEL SYNDROME [None]
  - POLYURIA [None]
  - VIRAL INFECTION [None]
